FAERS Safety Report 7320164-X (Version None)
Quarter: 2011Q1

REPORT INFORMATION
  Report Type: 
  Country: None (occurrence: None)
  Receive Date: 20110228
  Receipt Date: 20110215
  Transmission Date: 20110831
  Serious: Yes (Hospitalization)
  Sender: FDA-Public Use
  Company Number: PHFR2011IE01338

PATIENT
  Sex: Male

DRUGS (1)
  1. CLOZARIL [Suspect]
     Indication: SCHIZOPHRENIA
     Route: 048
     Dates: start: 20041119, end: 20110201

REACTIONS (5)
  - FAECALOMA [None]
  - INFECTION [None]
  - URINARY RETENTION [None]
  - MALAISE [None]
  - DYSPNOEA [None]
